FAERS Safety Report 21987380 (Version 2)
Quarter: 2024Q1

REPORT INFORMATION
  Report Type: Spontaneous
  Country: GB (occurrence: GB)
  Receive Date: 20230214
  Receipt Date: 20240209
  Transmission Date: 20240410
  Serious: No
  Sender: FDA-Public Use
  Company Number: None

PATIENT
  Age: 75 Year
  Sex: Female
  Weight: 57 kg

DRUGS (8)
  1. CEPHALEXIN [Suspect]
     Active Substance: CEPHALEXIN
     Indication: Product used for unknown indication
     Dosage: 750 MILLIGRAM, QD (CAPSULE)
     Route: 065
     Dates: start: 20220818
  2. ATORVASTATIN [Concomitant]
     Active Substance: ATORVASTATIN
     Indication: Product used for unknown indication
     Dosage: UNK, QD(TAKE ONE EVERY EVENING)
     Route: 065
     Dates: start: 20220401
  3. LACTULOSE [Concomitant]
     Active Substance: LACTULOSE
     Indication: Product used for unknown indication
     Dosage: 15 MILLILITER, BID
     Route: 065
     Dates: start: 20220310
  4. NITROFURANTOIN [Concomitant]
     Active Substance: NITROFURANTOIN
     Indication: Product used for unknown indication
     Dosage: UNK, BID (BD)
     Route: 065
     Dates: start: 20220816
  5. PREDNISOLONE [Concomitant]
     Active Substance: PREDNISOLONE
     Indication: Product used for unknown indication
     Dosage: UNK, QD (6 TABLETS A DAY FOR 1 WEEK)
     Route: 065
     Dates: start: 20220822
  6. SENNA [Concomitant]
     Active Substance: SENNA LEAF\SENNOSIDES\SENNOSIDES A AND B
     Indication: Product used for unknown indication
     Dosage: UNK, HS (TAKE 1 OR 2 AT NIGHT)
     Route: 065
     Dates: start: 20220310
  7. Solpadol [Concomitant]
     Indication: Product used for unknown indication
     Dosage: UNK, QID (TAKE 1-2 TABLETS UP TO 4 TIMES A DAY)
     Route: 065
     Dates: start: 20220310
  8. TRIMETHOPRIM [Concomitant]
     Active Substance: TRIMETHOPRIM
     Indication: Product used for unknown indication
     Dosage: UNK, BID (TAKE ONE TABLET TWICE A DAY FOR 7 DAYS ONLY)
     Route: 065
     Dates: start: 20220822, end: 20220822

REACTIONS (1)
  - Rash [Recovering/Resolving]

NARRATIVE: CASE EVENT DATE: 20220822
